FAERS Safety Report 6986417-X (Version None)
Quarter: 2010Q3

REPORT INFORMATION
  Report Type: 
  Country: None (occurrence: None)
  Receive Date: 20100915
  Receipt Date: 20090828
  Transmission Date: 20110219
  Serious: No
  Sender: FDA-Public Use
  Company Number: US-WYE-H09982709

PATIENT
  Weight: 76.27 kg

DRUGS (6)
  1. PRISTIQ [Suspect]
     Indication: GENERALISED ANXIETY DISORDER
     Route: 048
     Dates: start: 20090601
  2. SOMA [Concomitant]
  3. LORAZEPAM [Concomitant]
  4. XANAX [Concomitant]
  5. LEVOTHYROXINE [Concomitant]
  6. VICODIN [Concomitant]

REACTIONS (6)
  - ABDOMINAL DISCOMFORT [None]
  - ANXIETY [None]
  - CONDITION AGGRAVATED [None]
  - NAUSEA [None]
  - RESTLESSNESS [None]
  - TIC [None]
